FAERS Safety Report 8712907 (Version 5)
Quarter: 2012Q4

REPORT INFORMATION
  Report Type: 
  Country: US (occurrence: US)
  Receive Date: 20120808
  Receipt Date: 20121029
  Transmission Date: 20130627
  Serious: No
  Sender: FDA-Public Use
  Company Number: US-PFIZER INC-2012191855

PATIENT
  Age: 64 Year
  Sex: Female
  Weight: 113 kg

DRUGS (17)
  1. LYRICA [Suspect]
     Indication: FIBROMYALGIA
     Dosage: 75 mg, 2x/day
     Dates: start: 20120718
  2. LYRICA [Suspect]
     Dosage: 75 mg, 1x/day
     Dates: start: 201208
  3. FLEET ENEMA [Concomitant]
     Indication: CONSTIPATION
     Dosage: UNK
  4. GLYCERIN [Concomitant]
     Indication: CONSTIPATION
     Dosage: UNK
  5. CLONAZEPAM [Concomitant]
     Indication: PANIC ATTACKS
     Dosage: 3 mg, 1x/day, 0.5 mg in morning and at 2pm and 1 mg at bed time, 3x/day
  6. CLONAZEPAM [Concomitant]
     Dosage: 2 mg, 1x/day
     Dates: start: 2012
  7. GABAPENTIN [Concomitant]
     Indication: PANIC ATTACKS
     Dosage: 1200 mg, 1x/day, 300 mg in morning and at 2PM and 600 mg at bed time
  8. GABAPENTIN [Concomitant]
     Dosage: 1200 mg, 1x/day
     Dates: start: 2012
  9. VIIBRYD [Concomitant]
     Indication: PANIC ATTACKS
     Dosage: 25 mg, daily
  10. HYDROCODONE [Concomitant]
     Indication: PAIN
     Dosage: ^10/325 mg^ every 4 hours as needed upto 6 times a day
  11. PRILOSEC [Concomitant]
     Dosage: 20 mg, daily
  12. TOPAMAX [Concomitant]
     Dosage: 600 mg, daily
     Route: 048
  13. VIVELLE-DOT [Concomitant]
     Indication: HYSTERECTOMY
     Dosage: UNK, 2x/week
  14. SPIRIVA [Concomitant]
     Indication: CHRONIC OBSTRUCTIVE PULMONARY DISEASE
     Dosage: 1 puff, daily
  15. DULERA [Concomitant]
     Indication: CHRONIC OBSTRUCTIVE PULMONARY DISEASE
     Dosage: 5/200 mcg, two times a day as needed
  16. FLORAJEN 3 [Concomitant]
     Indication: STOMACH DISCOMFORT
     Dosage: UNK
  17. FLORAJEN 3 [Concomitant]
     Indication: HIATUS HERNIA

REACTIONS (5)
  - Constipation [Unknown]
  - Malaise [Unknown]
  - Pain [Recovering/Resolving]
  - Diarrhoea [Not Recovered/Not Resolved]
  - Paraesthesia [Not Recovered/Not Resolved]
